FAERS Safety Report 17135105 (Version 1)
Quarter: 2019Q4

REPORT INFORMATION
  Report Type: Spontaneous
  Country: US (occurrence: US)
  Receive Date: 20191210
  Receipt Date: 20191210
  Transmission Date: 20200122
  Serious: No
  Sender: FDA-Public Use
  Company Number: US-PFIZER INC-2019373998

PATIENT
  Age: 74 Year
  Sex: Male

DRUGS (1)
  1. TESTOSTERONE CIPIONATE [Suspect]
     Active Substance: TESTOSTERONE
     Dosage: UNK [200 MG/ML 10 ML VIAL ]

REACTIONS (5)
  - Drug ineffective [Unknown]
  - Mood swings [Unknown]
  - Hyperhidrosis [Unknown]
  - Anger [Unknown]
  - Pain [Unknown]
